FAERS Safety Report 11271743 (Version 1)
Quarter: 2015Q3

REPORT INFORMATION
  Report Type: Spontaneous
  Country: US (occurrence: US)
  Receive Date: 20150715
  Receipt Date: 20150715
  Transmission Date: 20151125
  Serious: Yes (Hospitalization)
  Sender: FDA-Public Use
  Company Number: US-ROCHE-1607067

PATIENT
  Age: 71 Year
  Sex: Female

DRUGS (6)
  1. TOPAMAX [Concomitant]
     Active Substance: TOPIRAMATE
     Indication: SEIZURE
     Dosage: TAKE ONE PILL THREE TIMES A DAY
     Route: 065
  2. NEURONTIN [Concomitant]
     Active Substance: GABAPENTIN
     Indication: BACK PAIN
     Dosage: TAKE ONE PILL THREE TIMES A DAY.
     Route: 065
  3. KLONOPIN [Suspect]
     Active Substance: CLONAZEPAM
     Dosage: TAKE .25MG AT LUNCH, DINNER AND BEDTIME
     Route: 048
  4. LAMICTAL [Concomitant]
     Active Substance: LAMOTRIGINE
     Indication: SEIZURE
     Dosage: TAKE 25MG TWICE A DAY
     Route: 065
  5. PREMARIN [Concomitant]
     Active Substance: ESTROGENS, CONJUGATED
     Dosage: TAKE TWICE A DAY
     Route: 065
  6. KLONOPIN [Suspect]
     Active Substance: CLONAZEPAM
     Indication: SEIZURE
     Dosage: TAKE .5MG IN MORNING
     Route: 048

REACTIONS (11)
  - Hypervigilance [Not Recovered/Not Resolved]
  - Mania [Not Recovered/Not Resolved]
  - Contusion [Not Recovered/Not Resolved]
  - Fear [Not Recovered/Not Resolved]
  - Blood creatinine increased [Unknown]
  - Osteopenia [Not Recovered/Not Resolved]
  - Migraine [Recovered/Resolved]
  - Feeling abnormal [Not Recovered/Not Resolved]
  - Insomnia [Not Recovered/Not Resolved]
  - Spinal column stenosis [Recovered/Resolved]
  - Hysterectomy [Recovered/Resolved]

NARRATIVE: CASE EVENT DATE: 20150601
